FAERS Safety Report 5513397-6 (Version None)
Quarter: 2007Q4

REPORT INFORMATION
  Report Type: 
  Country: None (occurrence: None)
  Receive Date: 20071112
  Receipt Date: 20071031
  Transmission Date: 20080405
  Serious: Yes (Other)
  Sender: FDA-Public Use
  Company Number: FR-PFIZER INC-2007075823

PATIENT
  Sex: Male
  Weight: 49.7 kg

DRUGS (6)
  1. MARAVIROC [Suspect]
     Indication: HIV INFECTION
     Route: 048
  2. TIPRANAVIR [Concomitant]
     Route: 048
  3. ABACAVIR SULFATE LAMIVUDINE AND ZIDOVUDINE [Concomitant]
     Route: 048
  4. NORVIR [Concomitant]
     Route: 048
  5. SUSTIVA [Concomitant]
     Route: 048
     Dates: start: 20051026
  6. VIDEX [Concomitant]
     Route: 048

REACTIONS (1)
  - HODGKIN'S DISEASE [None]
